FAERS Safety Report 11196863 (Version 1)
Quarter: 2015Q2

REPORT INFORMATION
  Report Type: Spontaneous
  Country: US (occurrence: US)
  Receive Date: 20150617
  Receipt Date: 20150617
  Transmission Date: 20150821
  Serious: No
  Sender: FDA-Public Use
  Company Number: US-ASTRAZENECA-2015SE40935

PATIENT
  Age: 25603 Day
  Sex: Female
  Weight: 66.7 kg

DRUGS (7)
  1. TRAMADOL 50 OR 150 [Concomitant]
     Indication: PAIN
     Route: 048
  2. TRAMADOL 50 OR 150 [Concomitant]
     Indication: PAIN
     Route: 048
  3. PEPTO-BISMOL [Concomitant]
     Active Substance: BISMUTH SUBSALICYLATE\CALCIUM CARBONATE
     Indication: LAXATIVE SUPPORTIVE CARE
  4. MOVANTIK [Suspect]
     Active Substance: NALOXEGOL OXALATE
     Indication: CONSTIPATION
     Route: 048
     Dates: start: 20150424, end: 20150426
  5. MOVANTIK [Suspect]
     Active Substance: NALOXEGOL OXALATE
     Indication: CONSTIPATION
     Route: 048
     Dates: start: 20150424
  6. COLACE [Concomitant]
     Active Substance: DOCUSATE SODIUM
     Indication: LAXATIVE SUPPORTIVE CARE
  7. AMITIZA [Concomitant]
     Active Substance: LUBIPROSTONE
     Indication: LAXATIVE SUPPORTIVE CARE

REACTIONS (6)
  - Abdominal pain [Unknown]
  - Drug ineffective [Unknown]
  - Neuropathy peripheral [Unknown]
  - Constipation [Unknown]
  - Adverse event [Unknown]
  - Intentional product misuse [Unknown]

NARRATIVE: CASE EVENT DATE: 20150424
